FAERS Safety Report 10146327 (Version 1)
Quarter: 2014Q2

REPORT INFORMATION
  Report Type: Spontaneous
  Country: JP (occurrence: JP)
  Receive Date: 20140501
  Receipt Date: 20140501
  Transmission Date: 20141212
  Serious: Yes (Hospitalization)
  Sender: FDA-Public Use
  Company Number: JP-PFIZER INC-2014114198

PATIENT
  Age: 29 Year
  Sex: Female

DRUGS (1)
  1. TORISEL [Suspect]
     Indication: METASTATIC RENAL CELL CARCINOMA
     Dosage: UNK
     Route: 041

REACTIONS (4)
  - Drug-induced liver injury [Unknown]
  - Cancer pain [Unknown]
  - Gastrointestinal disorder [Unknown]
  - General physical health deterioration [Unknown]
